FAERS Safety Report 9194787 (Version 1)
Quarter: 2013Q1

REPORT INFORMATION
  Report Type: Spontaneous
  Country: US (occurrence: US)
  Receive Date: 20130327
  Receipt Date: 20130327
  Transmission Date: 20140127
  Serious: No
  Sender: FDA-Public Use
  Company Number: US-ALLERGAN-1209313US

PATIENT
  Age: 50 Year
  Sex: Female

DRUGS (1)
  1. LATISSE 0.03% [Suspect]
     Indication: GROWTH OF EYELASHES
     Dosage: UNK UNK, QHS
     Route: 061
     Dates: start: 20120704

REACTIONS (7)
  - Incorrect dose administered [Unknown]
  - Scleral disorder [Unknown]
  - Abnormal sensation in eye [Unknown]
  - Headache [Not Recovered/Not Resolved]
  - Abnormal sensation in eye [Unknown]
  - Eye pain [Unknown]
  - Scleral hyperaemia [Unknown]
